FAERS Safety Report 9776374 (Version 2)
Quarter: 2014Q1

REPORT INFORMATION
  Report Type: Report from Study
  Country: BR (occurrence: BR)
  Receive Date: 20131220
  Receipt Date: 20140130
  Transmission Date: 20141002
  Serious: Yes (Other)
  Sender: FDA-Public Use
  Company Number: BR-ELI_LILLY_AND_COMPANY-BR201312003484

PATIENT
  Sex: Male
  Weight: 82.85 kg

DRUGS (14)
  1. LISPRO REGLISPRO [Suspect]
     Indication: BLOOD GLUCOSE ABNORMAL
     Dosage: UNK, OTHER
     Route: 058
  2. LISPRO [Suspect]
     Indication: PRODUCT USED FOR UNKNOWN INDICATION
     Dosage: UNK, UNKNOWN
     Route: 065
  3. HUMULIN N [Suspect]
     Indication: DIABETES MELLITUS
     Dosage: UNK, UNKNOWN
     Route: 065
  4. HUMULIN N [Suspect]
     Indication: DIABETES MELLITUS MANAGEMENT
  5. LANTUS [Concomitant]
     Indication: BLOOD GLUCOSE NORMAL
     Dosage: 30 IU, EACH MORNING
     Route: 065
  6. VILDAGLIPTIN [Concomitant]
     Indication: DIABETES MELLITUS
     Dosage: 50 MG, UNKNOWN
     Route: 065
  7. ATORVASTATINA [Concomitant]
     Indication: BLOOD CHOLESTEROL
     Dosage: UNK, UNKNOWN
     Route: 065
  8. ATORVASTATINA [Concomitant]
     Indication: ARTERITIS CORONARY
  9. LOSARTAN POTASSIUM [Concomitant]
     Indication: PROPHYLAXIS
  10. ATENOLOL [Concomitant]
     Indication: HEART RATE ABNORMAL
     Dosage: 25 MG, UNKNOWN
     Route: 065
  11. ASPIRINA [Concomitant]
     Indication: BLOOD DISORDER
  12. GLIFAGE [Concomitant]
     Indication: BLOOD GLUCOSE NORMAL
     Route: 065
  13. ACTUS [Concomitant]
     Indication: GLYCOSYLATED HAEMOGLOBIN
     Dosage: UNK, UNKNOWN
     Route: 065
  14. ACTUS [Concomitant]
     Indication: BLOOD GLUCOSE NORMAL

REACTIONS (5)
  - Infarction [Unknown]
  - Blood glucose increased [Unknown]
  - Obsessive-compulsive disorder [Unknown]
  - Blood magnesium decreased [Unknown]
  - High density lipoprotein decreased [Unknown]
